FAERS Safety Report 7821333-2 (Version None)
Quarter: 2011Q4

REPORT INFORMATION
  Report Type: 
  Country: None (occurrence: None)
  Receive Date: 20111018
  Receipt Date: 20101118
  Transmission Date: 20120403
  Serious: No
  Sender: FDA-Public Use
  Company Number: US-ASTRAZENECA-2010SE55002

PATIENT
  Age: 82 Year
  Sex: Male
  Weight: 79.4 kg

DRUGS (3)
  1. DIOVAN [Concomitant]
  2. SYMBICORT [Suspect]
     Indication: CHRONIC OBSTRUCTIVE PULMONARY DISEASE
     Dosage: 160 MCG
     Route: 055
  3. ZETIA [Concomitant]

REACTIONS (2)
  - SOMNOLENCE [None]
  - HYPERSOMNIA [None]
